FAERS Safety Report 18915408 (Version 1)
Quarter: 2021Q1

REPORT INFORMATION
  Report Type: Spontaneous
  Country: US (occurrence: US)
  Receive Date: 20210219
  Receipt Date: 20210219
  Transmission Date: 20210420
  Serious: Yes (Hospitalization)
  Sender: FDA-Public Use
  Company Number: None

PATIENT
  Age: 31 Year
  Sex: Female
  Weight: 60.3 kg

DRUGS (1)
  1. ABRAXANE [Suspect]
     Active Substance: PACLITAXEL
     Indication: BREAST CANCER
     Dosage: ?          OTHER FREQUENCY:WEEKLY;?
     Route: 042
     Dates: start: 20201207

REACTIONS (8)
  - Blood pressure increased [None]
  - Pruritus [None]
  - Flushing [None]
  - Tremor [None]
  - Cough [None]
  - Muscle twitching [None]
  - Diarrhoea [None]
  - Urticaria [None]

NARRATIVE: CASE EVENT DATE: 20210215
